FAERS Safety Report 16608701 (Version 1)
Quarter: 2019Q3

REPORT INFORMATION
  Report Type: Spontaneous
  Country: DE (occurrence: DE)
  Receive Date: 20190722
  Receipt Date: 20190722
  Transmission Date: 20191004
  Serious: Yes (Death, Hospitalization)
  Sender: FDA-Public Use
  Company Number: DE-TEVA-2019-DE-1079972

PATIENT
  Age: 58 Year
  Sex: Male
  Weight: 63 kg

DRUGS (15)
  1. METAMIZOL [Concomitant]
     Active Substance: METAMIZOLE SODIUM
     Dosage: 500 MG, 2-2-2-2, TABLETS
     Route: 048
  2. HYDROXYCARBAMID [Concomitant]
     Active Substance: HYDROXYUREA
     Dosage: 500 MG, 1-0-1-0, TABLETS
     Route: 048
  3. FENTANYL. [Concomitant]
     Active Substance: FENTANYL
     Dosage: 25 MICROGRAMS, EVERY 3 D, PLASTER TRANSDERMAL
     Route: 062
  4. PEMETREXED. [Suspect]
     Active Substance: PEMETREXED
     Dosage: 920 MG, BY SCHEME, LAST ON 22/11/2017, SOLUTION FOR INJECTION/INFUSION
     Route: 042
  5. CALCIMAGON D3 500MG/400 I.E. [Concomitant]
     Dosage: 00|400 MG/I.E., 1-0-0-0, CHEWABLE TABLETS
     Route: 048
  6. FOLSAURE [Concomitant]
     Active Substance: FOLIC ACID
     Dosage: 5 MG, 1-0-0-0, TABLETS
     Route: 048
  7. GABAPENTIN. [Concomitant]
     Active Substance: GABAPENTIN
     Dosage: 100 MG, 1-1-1-0, TABLETS
     Route: 048
  8. LOPERAMID [Concomitant]
     Active Substance: LOPERAMIDE
     Dosage: 2 MG, NEED, TABLETS
     Route: 048
  9. ANAGRELID [Concomitant]
     Dosage: 0.5 MG, 1-1-1-0, TABLETS
     Route: 048
  10. ASS 100 [Concomitant]
     Active Substance: ASPIRIN
     Dosage: 100 MG, 1-0-0-0, TABLETS
     Route: 048
  11. CARBOPLATIN. [Suspect]
     Active Substance: CARBOPLATIN
     Dosage: 367.90 MG, BY SCHEME, LAST ON 22.11.2017, SOLUTION FOR INJECTION/INFUSION
     Route: 042
  12. CLEXANE 100MG [Concomitant]
     Dosage: 0.4 ML, 0-0-1-0, SOLUTION FOR INJECTION/INFUSION
     Route: 058
  13. ULTIBRO BREEZHALER 85?G/43 ?G [Concomitant]
     Dosage: 85-43 G, 1-0-0-0, AEROSOL DOSAGE
     Route: 055
  14. PANTOPRAZOL [Concomitant]
     Active Substance: PANTOPRAZOLE SODIUM
     Dosage: 40 MG, 1-0-0-0, TABLETS
     Route: 048
  15. MIRTAZAPIN [Concomitant]
     Active Substance: MIRTAZAPINE
     Dosage: 15 MG, 0-0-1-0, TABLETS
     Route: 048

REACTIONS (4)
  - Fatigue [Unknown]
  - Diarrhoea [Unknown]
  - Weight decreased [Unknown]
  - General physical health deterioration [Unknown]
